FAERS Safety Report 13458599 (Version 3)
Quarter: 2017Q2

REPORT INFORMATION
  Report Type: Spontaneous
  Country: JP (occurrence: JP)
  Receive Date: 20170419
  Receipt Date: 20170603
  Transmission Date: 20170830
  Serious: No
  Sender: FDA-Public Use
  Company Number: JP-AMGEN-JPNSP2017059443

PATIENT
  Age: 65 Year
  Sex: Male

DRUGS (6)
  1. NESP [Suspect]
     Active Substance: DARBEPOETIN ALFA
     Dosage: 120 MUG, 1X/2WEEKS
     Route: 058
     Dates: start: 20170324
  2. NEXIUM [Suspect]
     Active Substance: ESOMEPRAZOLE MAGNESIUM
     Indication: PRODUCT USED FOR UNKNOWN INDICATION
     Dosage: 2 MG, UNK
     Route: 048
     Dates: end: 201703
  3. WARFARIN [Suspect]
     Active Substance: WARFARIN
     Dosage: 3 MG, UNK
     Route: 048
     Dates: end: 201703
  4. WARFARIN [Suspect]
     Active Substance: WARFARIN
     Indication: PRODUCT USED FOR UNKNOWN INDICATION
     Dosage: 3 MG, UNK
     Route: 048
  5. NESP [Suspect]
     Active Substance: DARBEPOETIN ALFA
     Indication: NEPHROGENIC ANAEMIA
     Dosage: 40 MUG, Q2WK
     Route: 058
     Dates: start: 201604
  6. NESP [Suspect]
     Active Substance: DARBEPOETIN ALFA
     Dosage: 60 MUG, Q2WK
     Route: 058
     Dates: start: 201611

REACTIONS (1)
  - Drug ineffective [Recovering/Resolving]

NARRATIVE: CASE EVENT DATE: 201702
